FAERS Safety Report 21708028 (Version 1)
Quarter: 2022Q4

REPORT INFORMATION
  Report Type: Spontaneous
  Country: DE (occurrence: DE)
  Receive Date: 20221209
  Receipt Date: 20221209
  Transmission Date: 20230113
  Serious: Yes (Hospitalization, Other)
  Sender: FDA-Public Use
  Company Number: DE-KRKA-DE2022K15167SPO

PATIENT
  Age: 16 Year
  Sex: Male
  Weight: 58 kg

DRUGS (4)
  1. DICLOFENAC [Suspect]
     Active Substance: DICLOFENAC
     Indication: Drug abuse
     Dosage: 3 DF, SINGLE DOSE
     Route: 048
     Dates: start: 20221123, end: 20221123
  2. ACETAMINOPHEN\ASCORBIC ACID\CAFFEINE\CHLORPHENIRAMINE MALEATE\NOSCAPIN [Suspect]
     Active Substance: ACETAMINOPHEN\ASCORBIC ACID\CAFFEINE\CHLORPHENIRAMINE MALEATE\NOSCAPINE HYDROCHLORIDE
     Indication: Drug abuse
     Dosage: 200/2.5/150/25 MG/G/MG/MG
     Route: 045
     Dates: start: 20221123, end: 20221123
  3. SILDENAFIL CITRATE [Suspect]
     Active Substance: SILDENAFIL CITRATE
     Indication: Drug abuse
     Dosage: 100 MG, SINGLE DOSE
     Route: 048
     Dates: start: 20221123, end: 20221123
  4. NALOXONE HYDROCHLORIDE\TILIDINE HYDROCHLORIDE [Suspect]
     Active Substance: NALOXONE HYDROCHLORIDE\TILIDINE HYDROCHLORIDE
     Indication: Drug abuse
     Dosage: 3 DF, SINGLE DOSE
     Route: 048
     Dates: start: 20221123, end: 20221123

REACTIONS (4)
  - Hypersomnia [Unknown]
  - Drug abuse [Unknown]
  - Tremor [Unknown]
  - Fatigue [Unknown]

NARRATIVE: CASE EVENT DATE: 20221123
